FAERS Safety Report 19075094 (Version 2)
Quarter: 2024Q1

REPORT INFORMATION
  Report Type: Spontaneous
  Country: US (occurrence: None)
  Receive Date: 20210330
  Receipt Date: 20240319
  Transmission Date: 20240410
  Serious: No
  Sender: FDA-Public Use
  Company Number: US-ROCHE-2749679

PATIENT
  Age: 77 Year
  Sex: Female

DRUGS (2)
  1. ERIVEDGE [Suspect]
     Active Substance: VISMODEGIB
     Indication: Basal cell carcinoma
     Dosage: ONGOING: YES
     Route: 048
     Dates: start: 20200925
  2. ERIVEDGE [Suspect]
     Active Substance: VISMODEGIB
     Dosage: ONGOING: YES
     Route: 048
     Dates: start: 202209

REACTIONS (2)
  - Ageusia [Unknown]
  - Alopecia [Unknown]

NARRATIVE: CASE EVENT DATE: 20201201
